FAERS Safety Report 20708004 (Version 1)
Quarter: 2022Q2

REPORT INFORMATION
  Report Type: Other
  Country: JP (occurrence: None)
  Receive Date: 20220414
  Receipt Date: 20220414
  Transmission Date: 20220721
  Serious: Yes (Hospitalization)
  Sender: FDA-Public Use
  Company Number: JP-Umedica-000226

PATIENT
  Age: 29 Year
  Sex: Female

DRUGS (1)
  1. CELECOXIB [Suspect]
     Active Substance: CELECOXIB
     Indication: Tocolysis
     Dosage: 100 MG CELECOXIB TABLET ORALLY EVERY 12 HOURS.
     Route: 048

REACTIONS (4)
  - Preterm premature rupture of membranes [Recovered/Resolved]
  - Exposure during pregnancy [Unknown]
  - Treatment failure [Unknown]
  - Premature labour [Unknown]
